FAERS Safety Report 17988236 (Version 1)
Quarter: 2020Q3

REPORT INFORMATION
  Report Type: Spontaneous
  Country: US (occurrence: US)
  Receive Date: 20200706
  Receipt Date: 20200706
  Transmission Date: 20201103
  Serious: Yes (Hospitalization)
  Sender: FDA-Public Use
  Company Number: None

PATIENT
  Sex: Female

DRUGS (14)
  1. SMZ/TMP [Concomitant]
     Active Substance: SULFAMETHOXAZOLE\TRIMETHOPRIM
  2. QUINAPRIL. [Concomitant]
     Active Substance: QUINAPRIL
  3. VIRTUSSIN [Concomitant]
  4. ATORVASTATIN [Concomitant]
     Active Substance: ATORVASTATIN
  5. POT CHLORIDE [Concomitant]
     Active Substance: POTASSIUM CHLORIDE
  6. NUCALA [Suspect]
     Active Substance: MEPOLIZUMAB
     Indication: ASTHMA
     Dosage: ?          OTHER FREQUENCY:Q4WKS;?
     Route: 058
     Dates: start: 20200612
  7. METOPROLOL TARTRATE. [Concomitant]
     Active Substance: METOPROLOL TARTRATE
  8. DOXYCYCL [Concomitant]
  9. PREDNISONE. [Concomitant]
     Active Substance: PREDNISONE
  10. BUMETANIDE. [Concomitant]
     Active Substance: BUMETANIDE
  11. IPRATROPIUM [Concomitant]
     Active Substance: IPRATROPIUM
  12. SPIRONOLACT [Concomitant]
     Active Substance: SPIRONOLACTONE
  13. TRELEGY ELLIPTA [Concomitant]
     Active Substance: FLUTICASONE FUROATE\UMECLIDINIUM BROMIDE\VILANTEROL TRIFENATATE
  14. XARELTO [Concomitant]
     Active Substance: RIVAROXABAN

REACTIONS (2)
  - Fungal infection [None]
  - Pneumonia [None]
